FAERS Safety Report 16336793 (Version 2)
Quarter: 2019Q3

REPORT INFORMATION
  Report Type: Spontaneous
  Country: US (occurrence: US)
  Receive Date: 20190521
  Receipt Date: 20190930
  Transmission Date: 20191004
  Serious: No
  Sender: FDA-Public Use
  Company Number: US-HTU-2019US018793

PATIENT
  Age: 71 Year
  Sex: Male

DRUGS (1)
  1. VALCHLOR [Suspect]
     Active Substance: MECHLORETHAMINE
     Indication: CUTANEOUS T-CELL LYMPHOMA
     Dosage: UNK, QOD
     Route: 061
     Dates: start: 20190108

REACTIONS (5)
  - Weight increased [Not Recovered/Not Resolved]
  - Pruritus [Not Recovered/Not Resolved]
  - Chemical burn of skin [Recovered/Resolved]
  - Erythema [Not Recovered/Not Resolved]
  - Rash [Not Recovered/Not Resolved]

NARRATIVE: CASE EVENT DATE: 201902
